FAERS Safety Report 7363199-3 (Version None)
Quarter: 2011Q1

REPORT INFORMATION
  Report Type: 
  Country: None (occurrence: None)
  Receive Date: 20110321
  Receipt Date: 20100908
  Transmission Date: 20110831
  Serious: Yes (Hospitalization, Other)
  Sender: FDA-Public Use
  Company Number: US-BAYER-201028651NA

PATIENT
  Sex: Female
  Weight: 77.098 kg

DRUGS (5)
  1. YAZ [Suspect]
     Indication: CONTRACEPTION
     Dosage: UNK
     Route: 048
     Dates: start: 20070701, end: 20080601
  2. YASMIN [Suspect]
     Indication: CONTRACEPTION
     Dosage: UNK
     Route: 048
     Dates: start: 20050601, end: 20070601
  3. PERCOCET [Concomitant]
     Indication: PAIN
     Dosage: UNK
     Dates: start: 20080601
  4. YASMIN [Suspect]
     Indication: OVARIAN CYST
  5. YAZ [Suspect]
     Indication: OVARIAN CYST

REACTIONS (6)
  - PULMONARY EMBOLISM [None]
  - ARTHRALGIA [None]
  - OEDEMA PERIPHERAL [None]
  - THROMBOSIS [None]
  - DEEP VEIN THROMBOSIS [None]
  - PAIN [None]
